FAERS Safety Report 14106550 (Version 7)
Quarter: 2018Q2

REPORT INFORMATION
  Report Type: Spontaneous
  Country: US (occurrence: US)
  Receive Date: 20171019
  Receipt Date: 20180403
  Transmission Date: 20180711
  Serious: Yes (Hospitalization, Disabling, Other)
  Sender: FDA-Public Use
  Company Number: PHEH2017US033295

PATIENT
  Age: 63 Year
  Sex: Male
  Weight: 85 kg

DRUGS (8)
  1. LENVIMA [Suspect]
     Active Substance: LENVATINIB
     Dosage: 18 MG, QD
     Route: 048
     Dates: start: 20170608
  2. MULTI VITAMIN [Concomitant]
     Active Substance: VITAMINS
     Indication: PRODUCT USED FOR UNKNOWN INDICATION
     Dosage: UNK
     Route: 048
     Dates: start: 20101022
  3. AFINITOR [Suspect]
     Active Substance: EVEROLIMUS
     Indication: RENAL CANCER
     Dosage: 5 MG, QD
     Route: 048
     Dates: start: 20130601, end: 20171001
  4. AFINITOR [Suspect]
     Active Substance: EVEROLIMUS
     Dosage: 5 MG, UNK
     Route: 048
     Dates: end: 20180219
  5. LENVIMA [Suspect]
     Active Substance: LENVATINIB
     Indication: RENAL CELL CARCINOMA
     Dosage: 18 MG, QD (ONCE DAILY)
     Route: 048
     Dates: start: 20170401
  6. AMLODIPINE [Concomitant]
     Active Substance: AMLODIPINE BESYLATE
     Indication: HYPERTENSION
     Dosage: 5 MG, QD
     Route: 048
     Dates: start: 20171030
  7. KEPPRA [Concomitant]
     Active Substance: LEVETIRACETAM
     Indication: SEIZURE
     Dosage: 500 MG, BID
     Route: 048
     Dates: start: 20170501
  8. METOPROLOL. [Concomitant]
     Active Substance: METOPROLOL
     Indication: HYPERTENSION
     Dosage: 200 MG, QD
     Route: 048
     Dates: start: 20101022

REACTIONS (27)
  - Nausea [Recovered/Resolved]
  - Hypophagia [Unknown]
  - Urine osmolarity decreased [Unknown]
  - Dizziness [Unknown]
  - Metastases to central nervous system [Unknown]
  - Polyuria [Unknown]
  - Hypothyroidism [Unknown]
  - Hyperkalaemia [Recovered/Resolved]
  - Pancytopenia [Unknown]
  - Blood test abnormal [Unknown]
  - Fatigue [Recovered/Resolved]
  - Mass [Unknown]
  - Influenza like illness [Unknown]
  - Hypotension [Recovered/Resolved]
  - Renal failure [Recovered/Resolved]
  - Fatigue [Recovered/Resolved]
  - Lung consolidation [Unknown]
  - Asthenia [Recovered/Resolved]
  - Asthenia [Recovered/Resolved]
  - Acidosis [Unknown]
  - Single functional kidney [Unknown]
  - Dehydration [Unknown]
  - Vomiting [Recovered/Resolved]
  - Cough [Recovered/Resolved]
  - Diarrhoea [Recovered/Resolved]
  - Acute kidney injury [Recovered/Resolved]
  - Metastases to lung [Unknown]

NARRATIVE: CASE EVENT DATE: 20170925
